FAERS Safety Report 6355191-2 (Version None)
Quarter: 2009Q3

REPORT INFORMATION
  Report Type: 
  Country: None (occurrence: None)
  Receive Date: 20090914
  Receipt Date: 20090812
  Transmission Date: 20100115
  Serious: No
  Sender: FDA-Public Use
  Company Number: US-BAYER-200913317BCC

PATIENT
  Age: 53 Year
  Sex: Female

DRUGS (1)
  1. FINACEA [Suspect]
     Indication: DRUG USE FOR UNKNOWN INDICATION
     Route: 065
     Dates: start: 20090501

REACTIONS (4)
  - ERYTHEMA [None]
  - INFLAMMATION [None]
  - PRURITUS [None]
  - RASH [None]
